FAERS Safety Report 10018782 (Version 1)
Quarter: 2014Q1

REPORT INFORMATION
  Report Type: Spontaneous
  Country: US (occurrence: None)
  Receive Date: 20140314
  Receipt Date: 20140314
  Transmission Date: 20141002
  Serious: No
  Sender: FDA-Public Use
  Company Number: None

PATIENT
  Age: 69 Year
  Sex: Female
  Weight: 84.82 kg

DRUGS (1)
  1. LEVOTHYROXINE SODIUM [Suspect]
     Route: 048

REACTIONS (10)
  - Dry skin [None]
  - Constipation [None]
  - Insomnia [None]
  - Mood swings [None]
  - Alopecia [None]
  - Madarosis [None]
  - Madarosis [None]
  - Irritability [None]
  - Depression [None]
  - Weight increased [None]
